FAERS Safety Report 23898794 (Version 4)
Quarter: 2024Q2

REPORT INFORMATION
  Report Type: Spontaneous
  Country: US (occurrence: US)
  Receive Date: 20240525
  Receipt Date: 20240621
  Transmission Date: 20240716
  Serious: Yes (Other)
  Sender: FDA-Public Use
  Company Number: US-ABBVIE-5773369

PATIENT
  Sex: Female

DRUGS (13)
  1. BOTOX [Suspect]
     Active Substance: ONABOTULINUMTOXINA
     Indication: Skin cosmetic procedure
     Dosage: TIME INTERVAL: AS NECESSARY: TOTAL DOSE:50 UNITS
     Route: 030
     Dates: start: 20240118, end: 20240118
  2. BOTOX [Suspect]
     Active Substance: ONABOTULINUMTOXINA
     Indication: Skin cosmetic procedure
     Dosage: TIME INTERVAL: AS NECESSARY: TOTAL DOSE:50 UNITS
     Route: 030
     Dates: start: 20240131, end: 20240131
  3. BOTOX [Suspect]
     Active Substance: ONABOTULINUMTOXINA
     Indication: Skin cosmetic procedure
     Dosage: TIME INTERVAL: AS NECESSARY: TOTAL DOSE:50 UNITS
     Route: 030
     Dates: start: 20240118, end: 20240118
  4. BOTOX [Suspect]
     Active Substance: ONABOTULINUMTOXINA
     Indication: Skin cosmetic procedure
     Dosage: TIME INTERVAL: AS NECESSARY: TOTAL DOSE:50 UNITS
     Route: 030
     Dates: start: 20240118, end: 20240118
  5. BOTOX [Suspect]
     Active Substance: ONABOTULINUMTOXINA
     Indication: Skin cosmetic procedure
     Dosage: TIME INTERVAL: AS NECESSARY: TOTAL DOSE:50 UNITS
     Route: 030
     Dates: start: 20240118, end: 20240118
  6. BOTOX [Suspect]
     Active Substance: ONABOTULINUMTOXINA
     Indication: Skin cosmetic procedure
     Dosage: TIME INTERVAL: AS NECESSARY: TOTAL DOSE:50 UNITS
     Route: 030
     Dates: start: 20240118, end: 20240118
  7. BOTOX [Suspect]
     Active Substance: ONABOTULINUMTOXINA
     Indication: Skin cosmetic procedure
     Dosage: TIME INTERVAL: AS NECESSARY: TOTAL DOSE:50 UNITS
     Route: 030
     Dates: start: 20240131, end: 20240131
  8. BOTOX [Suspect]
     Active Substance: ONABOTULINUMTOXINA
     Indication: Skin cosmetic procedure
     Dosage: TIME INTERVAL: AS NECESSARY: TOTAL DOSE:50 UNITS
     Route: 030
     Dates: start: 20240131, end: 20240131
  9. BOTOX [Suspect]
     Active Substance: ONABOTULINUMTOXINA
     Indication: Skin cosmetic procedure
     Dosage: TIME INTERVAL: AS NECESSARY: TOTAL DOSE:50 UNITS
     Route: 030
     Dates: start: 20240131, end: 20240131
  10. BOTOX [Suspect]
     Active Substance: ONABOTULINUMTOXINA
     Indication: Skin cosmetic procedure
     Dosage: TIME INTERVAL: AS NECESSARY: TOTAL DOSE:50 UNITS
     Route: 030
     Dates: start: 20240131, end: 20240131
  11. BOTOX [Suspect]
     Active Substance: ONABOTULINUMTOXINA
     Indication: Skin cosmetic procedure
     Dosage: TIME INTERVAL: AS NECESSARY
     Route: 065
  12. KEFLEX [Concomitant]
     Active Substance: CEPHALEXIN
     Indication: Postoperative care
  13. CLARITIN [Concomitant]
     Active Substance: LORATADINE
     Indication: Seasonal allergy
     Dosage: TIME INTERVAL: AS NECESSARY: PILL
     Route: 048

REACTIONS (7)
  - Cyst [Recovering/Resolving]
  - Swelling face [Recovering/Resolving]
  - Lip swelling [Recovered/Resolved]
  - Induration [Recovering/Resolving]
  - Inflammation [Recovering/Resolving]
  - Induration [Recovered/Resolved]
  - Product preparation error [Unknown]

NARRATIVE: CASE EVENT DATE: 20240101
